FAERS Safety Report 20916742 (Version 1)
Quarter: 2022Q2

REPORT INFORMATION
  Report Type: Spontaneous
  Country: AU (occurrence: AU)
  Receive Date: 20220605
  Receipt Date: 20220605
  Transmission Date: 20220721
  Serious: Yes (Hospitalization, Other)
  Sender: FDA-Public Use
  Company Number: AU-NOVARTISPH-NVSC2022AU127779

PATIENT
  Age: 71 Year
  Sex: Male

DRUGS (5)
  1. MYCOPHENOLATE MOFETIL [Suspect]
     Active Substance: MYCOPHENOLATE MOFETIL
     Indication: Product used for unknown indication
     Dosage: 720 MG, BID
     Route: 065
  2. PREDNISOLONE [Suspect]
     Active Substance: PREDNISOLONE
     Indication: Product used for unknown indication
     Dosage: 1 MG/KG (MULTIPLE WEANING ATTEMPTS)
     Route: 065
  3. BACTRIM [Concomitant]
     Active Substance: SULFAMETHOXAZOLE\TRIMETHOPRIM
     Indication: Product used for unknown indication
     Dosage: 0.5 DOSAGE FORM, QD
     Route: 065
     Dates: start: 2020
  4. VALTREX [Concomitant]
     Active Substance: VALACYCLOVIR HYDROCHLORIDE
     Indication: Product used for unknown indication
     Dosage: 500 MG, QD
     Route: 065
     Dates: start: 2020
  5. THYROXINE [Concomitant]
     Active Substance: LEVOTHYROXINE
     Indication: Product used for unknown indication
     Dosage: 75 UG, QD (OBEFORE 2000)
     Route: 065

REACTIONS (4)
  - Febrile neutropenia [Unknown]
  - Abdominal pain [Unknown]
  - Hypotension [Unknown]
  - VEXAS syndrome [Unknown]

NARRATIVE: CASE EVENT DATE: 20210101
